FAERS Safety Report 8494951-9 (Version None)
Quarter: 2012Q3

REPORT INFORMATION
  Report Type: 
  Country: None (occurrence: None)
  Receive Date: 20120709
  Receipt Date: 20120629
  Transmission Date: 20120928
  Serious: Yes (Other)
  Sender: FDA-Public Use
  Company Number: JP-SANOFI-AVENTIS-2012SA045573

PATIENT

DRUGS (1)
  1. ALLEGRA [Suspect]
     Route: 048

REACTIONS (1)
  - CANDIDIASIS [None]
